FAERS Safety Report 4314817-5 (Version None)
Quarter: 2004Q1

REPORT INFORMATION
  Report Type: 
  Country: None (occurrence: None)
  Receive Date: 20040310
  Receipt Date: 20040302
  Transmission Date: 20041129
  Serious: Yes (Hospitalization)
  Sender: FDA-Public Use
  Company Number: PHRM2004FR01023

PATIENT
  Age: 79 Year
  Sex: Male

DRUGS (11)
  1. TEGRETOL [Suspect]
     Route: 048
  2. LIORESAL [Suspect]
     Route: 048
  3. INDAPAMIDE [Suspect]
     Dosage: 1.5 MG/DAY
     Route: 048
  4. MOPRAL [Suspect]
     Dosage: 20 MG/DAY
     Route: 048
  5. LOVENOX [Suspect]
     Route: 058
     Dates: end: 20040115
  6. PROZAC [Suspect]
     Dosage: 20 MG/DAY
     Route: 048
     Dates: end: 20040107
  7. PRAXILENE [Suspect]
     Route: 048
  8. MOTILIUM [Suspect]
     Route: 048
  9. DIFFU K [Suspect]
     Route: 048
  10. FORLAX [Suspect]
     Route: 048
  11. XYZALL [Suspect]
     Route: 048

REACTIONS (1)
  - ECZEMA [None]
